FAERS Safety Report 19600545 (Version 1)
Quarter: 2021Q3

REPORT INFORMATION
  Report Type: Spontaneous
  Country: US (occurrence: US)
  Receive Date: 20210723
  Receipt Date: 20210723
  Transmission Date: 20211014
  Serious: Yes (Hospitalization)
  Sender: FDA-Public Use
  Company Number: US-STRIDES ARCOLAB LIMITED-2020SP012666

PATIENT
  Age: 39 Year
  Sex: Male

DRUGS (4)
  1. PREDNISOLONE. [Suspect]
     Active Substance: PREDNISOLONE
     Indication: HEART TRANSPLANT
     Dosage: UNK
     Route: 065
  2. CYCLOSPORINE. [Suspect]
     Active Substance: CYCLOSPORINE
     Indication: HEART TRANSPLANT
     Dosage: UNK
     Route: 048
  3. MYCOPHENOLATE MOFETIL. [Suspect]
     Active Substance: MYCOPHENOLATE MOFETIL
     Indication: HEART TRANSPLANT
     Dosage: UNK
     Route: 065
  4. CYCLOSPORINE. [Suspect]
     Active Substance: CYCLOSPORINE
     Dosage: DOSE WAS REDUCED TO 25MG TWICE DAILY
     Route: 065

REACTIONS (12)
  - Skin lesion [Unknown]
  - Candida infection [Unknown]
  - Erythema [Unknown]
  - Peritonitis [Unknown]
  - Mucormycosis [Unknown]
  - Skin necrosis [Unknown]
  - Inflammation [Unknown]
  - Scab [Unknown]
  - Fungaemia [Unknown]
  - Wound [Unknown]
  - Tenderness [Unknown]
  - Osteomyelitis [Unknown]
